FAERS Safety Report 6941808-8 (Version None)
Quarter: 2010Q3

REPORT INFORMATION
  Report Type: 
  Country: None (occurrence: None)
  Receive Date: 20100826
  Receipt Date: 20100818
  Transmission Date: 20110219
  Serious: Yes (Life-Threatening)
  Sender: FDA-Public Use
  Company Number: JP-PFIZER INC-2010097494

PATIENT
  Age: 4 Year
  Sex: Male
  Weight: 15 kg

DRUGS (12)
  1. SOLU-MEDROL [Suspect]
     Indication: ASTHMA
     Dosage: 16 MG, 4X/DAY
     Route: 042
     Dates: start: 20100731, end: 20100731
  2. SOLDEM 3A [Concomitant]
     Dosage: 340 ML, DAY
     Route: 042
     Dates: start: 20100731
  3. FLUMARIN [Concomitant]
     Dosage: 350 ML, 3X/DAY
     Route: 042
     Dates: start: 20100731
  4. MEPTIN [Concomitant]
     Dosage: 0.15 ML, 3X/DAY
     Route: 055
     Dates: start: 20100731
  5. INTAL [Concomitant]
     Dosage: 2 ML, 3X/DAY
     Route: 055
     Dates: start: 20100731
  6. ALEVAIRE [Concomitant]
     Dosage: 0.2 ML, 3X/DAY
     Route: 055
     Dates: start: 20100731
  7. ASVERIN [Concomitant]
     Dosage: 2 ML, 3X/DAY
     Route: 048
     Dates: start: 20100731
  8. ALIMEZINE [Concomitant]
     Dosage: 2 ML, 3X/DAY
     Route: 048
     Dates: start: 20100731
  9. MUCODYNE [Concomitant]
     Dosage: 2 ML, 3X/DAY
     Route: 048
     Dates: start: 20100731
  10. MUCOSOLVAN [Concomitant]
     Dosage: 0.5 ML, 3X/DAY
     Route: 048
     Dates: start: 20100731
  11. ONON [Concomitant]
     Dosage: 57.5 MG, 2X/DAY
     Route: 048
     Dates: start: 20100731
  12. BIOFERMIN R [Concomitant]
     Dosage: 0.4 G, 3X/DAY
     Route: 048
     Dates: start: 20100731

REACTIONS (3)
  - OROPHARYNGEAL PAIN [None]
  - TACHYPNOEA [None]
  - USE OF ACCESSORY RESPIRATORY MUSCLES [None]
